FAERS Safety Report 15546452 (Version 1)
Quarter: 2018Q4

REPORT INFORMATION
  Report Type: Spontaneous
  Country: US (occurrence: US)
  Receive Date: 20181024
  Receipt Date: 20181024
  Transmission Date: 20190205
  Serious: Yes (Disabling, Other)
  Sender: FDA-Public Use
  Company Number: US-PFIZER INC-2018428420

PATIENT
  Age: 67 Year
  Sex: Female
  Weight: 53.61 kg

DRUGS (2)
  1. SKELAXIN [Suspect]
     Active Substance: METAXALONE
     Indication: INTERVERTEBRAL DISC PROTRUSION
  2. SKELAXIN [Suspect]
     Active Substance: METAXALONE
     Indication: SCOLIOSIS
     Dosage: 800 MG, 2X/DAY
     Route: 048
     Dates: end: 20181004

REACTIONS (3)
  - Posture abnormal [Not Recovered/Not Resolved]
  - Muscle spasms [Not Recovered/Not Resolved]
  - Aggression [Unknown]

NARRATIVE: CASE EVENT DATE: 201810
